FAERS Safety Report 6647846-7 (Version None)
Quarter: 2010Q1

REPORT INFORMATION
  Report Type: 
  Country: None (occurrence: None)
  Receive Date: 20100324
  Receipt Date: 20100310
  Transmission Date: 20100710
  Serious: No
  Sender: FDA-Public Use
  Company Number: US-JNJFOC-20100303554

PATIENT
  Sex: Female
  Weight: 53.98 kg

DRUGS (4)
  1. FENTANYL-100 [Suspect]
     Indication: PAIN
     Route: 062
  2. FENTANYL-100 [Suspect]
     Route: 062
  3. FENTANYL-100 [Suspect]
     Route: 062
  4. 5 UNSPECIFIED MEDICATIONS [Concomitant]
     Route: 065

REACTIONS (4)
  - MENOPAUSE [None]
  - PRODUCT QUALITY ISSUE [None]
  - ROAD TRAFFIC ACCIDENT [None]
  - WRONG TECHNIQUE IN DRUG USAGE PROCESS [None]
